FAERS Safety Report 7479093-3 (Version None)
Quarter: 2011Q2

REPORT INFORMATION
  Report Type: 
  Country: None (occurrence: None)
  Receive Date: 20110513
  Receipt Date: 20110504
  Transmission Date: 20111010
  Serious: Yes (Hospitalization, Other)
  Sender: FDA-Public Use
  Company Number: US-MERCK-1105USA01750

PATIENT
  Age: 52 Year
  Sex: Male

DRUGS (1)
  1. MAXALT [Suspect]
     Indication: MIGRAINE
     Route: 048

REACTIONS (3)
  - CARDIAC DISORDER [None]
  - DRUG EFFECT DECREASED [None]
  - MYOCARDIAL INFARCTION [None]
